FAERS Safety Report 13806173 (Version 1)
Quarter: 2017Q3

REPORT INFORMATION
  Report Type: Spontaneous
  Country: DE (occurrence: DE)
  Receive Date: 20170728
  Receipt Date: 20170728
  Transmission Date: 20171127
  Serious: Yes (Other)
  Sender: FDA-Public Use
  Company Number: DE-PFIZER INC-2017323823

PATIENT
  Age: 61 Year
  Sex: Female

DRUGS (3)
  1. VINORELBINE TARTRATE. [Suspect]
     Active Substance: VINORELBINE TARTRATE
     Indication: ALVEOLAR RHABDOMYOSARCOMA
     Dosage: 30 MG/M2, DAILY (D1 + D8) (MAX 60 MG ABS./D; Q3W)
     Route: 042
  2. CYCLOPHOSPHAMIDE. [Concomitant]
     Active Substance: CYCLOPHOSPHAMIDE
     Indication: ALVEOLAR RHABDOMYOSARCOMA
     Dosage: 250 MG/M2, DAILY (1-5 DAYS)
     Route: 042
  3. TOPOTECAN [Concomitant]
     Active Substance: TOPOTECAN HYDROCHLORIDE
     Indication: ALVEOLAR RHABDOMYOSARCOMA
     Dosage: 0.75 MG/M2, DAILY (1-5 DAYS)
     Route: 042

REACTIONS (6)
  - Autonomic neuropathy [Unknown]
  - Myalgia [Unknown]
  - Vomiting [Unknown]
  - Nausea [Unknown]
  - Arthralgia [Unknown]
  - Constipation [Unknown]
